FAERS Safety Report 17283716 (Version 1)
Quarter: 2020Q1

REPORT INFORMATION
  Report Type: Spontaneous
  Country: SE (occurrence: SE)
  Receive Date: 20200117
  Receipt Date: 20200117
  Transmission Date: 20200409
  Serious: Yes (Other)
  Sender: FDA-Public Use
  Company Number: SE-PFIZER INC-2020018103

PATIENT
  Sex: Female

DRUGS (1)
  1. GABAPENTIN. [Suspect]
     Active Substance: GABAPENTIN
     Indication: CERVICOBRACHIAL SYNDROME
     Dosage: UNK

REACTIONS (3)
  - Swelling face [Recovering/Resolving]
  - Product use in unapproved indication [Unknown]
  - Off label use [Unknown]
